FAERS Safety Report 4796549-2 (Version None)
Quarter: 2005Q4

REPORT INFORMATION
  Report Type: 
  Country: None (occurrence: None)
  Receive Date: 20051011
  Receipt Date: 20050420
  Transmission Date: 20060501
  Serious: Yes (Other)
  Sender: FDA-Public Use
  Company Number: US-JNJFOC-20040805549

PATIENT
  Age: 43 Year
  Sex: Male
  Weight: 81.6475 kg

DRUGS (1)
  1. ULTRACET [Suspect]
     Indication: MIGRAINE
     Dosage: UP TO 12 TABLETS DAILY

REACTIONS (1)
  - DRUG ABUSER [None]
